FAERS Safety Report 9886437 (Version 1)
Quarter: 2014Q1

REPORT INFORMATION
  Report Type: Spontaneous
  Country: FI (occurrence: FI)
  Receive Date: 20140210
  Receipt Date: 20140210
  Transmission Date: 20141002
  Serious: Yes (Other)
  Sender: FDA-Public Use
  Company Number: PHHY2014FI015819

PATIENT
  Age: 58 Year
  Sex: Male

DRUGS (1)
  1. LEPONEX [Suspect]
     Indication: SCHIZOPHRENIA, DISORGANISED TYPE
     Dosage: UNK
     Dates: start: 1991

REACTIONS (1)
  - Urosepsis [Recovered/Resolved]
